FAERS Safety Report 21386494 (Version 1)
Quarter: 2022Q3

REPORT INFORMATION
  Report Type: Spontaneous
  Country: US (occurrence: None)
  Receive Date: 20220926
  Receipt Date: 20220926
  Transmission Date: 20221026
  Serious: Yes (Hospitalization)
  Sender: FDA-Public Use
  Company Number: None

PATIENT
  Sex: Male

DRUGS (5)
  1. ATOVAQUONE [Suspect]
     Active Substance: ATOVAQUONE
     Indication: HIV infection
     Dosage: OTHER QUANTITY : 750MG/5ML;?FREQUENCY : DAILY;?
     Route: 048
     Dates: start: 20220722
  2. ATOVAQUONE [Suspect]
     Active Substance: ATOVAQUONE
     Dosage: FREQUENCY : DAILY;?
     Route: 048
  3. ATAZANAVIR [Concomitant]
     Active Substance: ATAZANAVIR
  4. ISENTRESS [Concomitant]
     Active Substance: RALTEGRAVIR POTASSIUM
  5. RITONAVIR [Concomitant]
     Active Substance: RITONAVIR

REACTIONS (2)
  - Surgery [None]
  - Therapy interrupted [None]
